FAERS Safety Report 6982646-X (Version None)
Quarter: 2010Q3

REPORT INFORMATION
  Report Type: 
  Country: None (occurrence: None)
  Receive Date: 20100914
  Receipt Date: 20100415
  Transmission Date: 20110219
  Serious: No
  Sender: FDA-Public Use
  Company Number: US-PFIZER INC-2010025183

PATIENT
  Sex: Female
  Weight: 59 kg

DRUGS (4)
  1. LYRICA [Suspect]
     Indication: FIBROMYALGIA
     Dosage: 75 MG, 2X/DAY
     Route: 048
     Dates: start: 20100129
  2. ULTRAM [Concomitant]
     Indication: FIBROMYALGIA
     Dosage: UNK
     Route: 048
  3. FLEXERIL [Concomitant]
     Indication: FIBROMYALGIA
     Dosage: UNK
     Route: 048
  4. CYMBALTA [Concomitant]
     Indication: FIBROMYALGIA
     Dosage: 60 MG, 1X/DAY
     Route: 048

REACTIONS (2)
  - BACK PAIN [None]
  - NECK PAIN [None]
